FAERS Safety Report 8582380-9 (Version None)
Quarter: 2012Q3

REPORT INFORMATION
  Report Type: 
  Country: None (occurrence: None)
  Receive Date: 20120809
  Receipt Date: 20120730
  Transmission Date: 20120928
  Serious: Yes (Other)
  Sender: FDA-Public Use
  Company Number: US-GLAXOSMITHKLINE-A0899166A

PATIENT
  Age: 74 Year
  Sex: Male

DRUGS (1)
  1. AVANDIA [Suspect]
     Indication: DIABETES MELLITUS
     Dosage: 8MG PER DAY
     Route: 048
     Dates: start: 20050301, end: 20080901

REACTIONS (4)
  - CEREBROVASCULAR ACCIDENT [None]
  - CAROTID ARTERY DISEASE [None]
  - ACUTE CORONARY SYNDROME [None]
  - ARTERIOSCLEROSIS [None]
